FAERS Safety Report 9169302 (Version 4)
Quarter: 2013Q4

REPORT INFORMATION
  Report Type: Spontaneous
  Country: US (occurrence: US)
  Receive Date: 20130318
  Receipt Date: 20131127
  Transmission Date: 20140711
  Serious: Yes (Hospitalization, Other)
  Sender: FDA-Public Use
  Company Number: US-B.I. PHARMACEUTICALS,INC./RIDGEFIELD-2013-BI-06720BP

PATIENT
  Age: 76 Year
  Sex: Female
  Weight: 63.5 kg

DRUGS (16)
  1. PRADAXA [Suspect]
     Indication: ANTICOAGULANT THERAPY
     Dosage: 300 MG
     Dates: start: 20110518, end: 20111012
  2. PRADAXA [Suspect]
     Indication: ATRIAL FIBRILLATION
  3. SYNTHROID [Concomitant]
     Dosage: 100 MCG
     Dates: start: 1960
  4. ASPIRIN [Concomitant]
     Dosage: 81 MG
     Dates: start: 19941218
  5. NORVASC [Concomitant]
     Dosage: 1.3636 MG
     Dates: start: 20000409
  6. ACTONEL [Concomitant]
     Dates: start: 20031218
  7. CRESTOR [Concomitant]
     Dosage: 10 MG
     Dates: start: 2007
  8. ZETIA [Concomitant]
     Dosage: 10 MG
     Dates: start: 20050421
  9. PRESERVISION [Concomitant]
  10. LUTEIN + ZEAXANTHIN [Concomitant]
  11. OMEGA 3 [Concomitant]
  12. VITAMIN B6 [Concomitant]
  13. VITAMIN B12 [Concomitant]
  14. CELEBREX [Concomitant]
     Dosage: 200 MG
  15. MICARDIS [Concomitant]
     Dosage: 40 MG
  16. AMILORIDE [Concomitant]
     Dosage: 5 MG
     Dates: start: 1999

REACTIONS (2)
  - Haemorrhoidal haemorrhage [Unknown]
  - Anaemia [Unknown]
